FAERS Safety Report 5611510-3 (Version None)
Quarter: 2008Q1

REPORT INFORMATION
  Report Type: 
  Country: None (occurrence: None)
  Receive Date: 20080201
  Receipt Date: 20080121
  Transmission Date: 20080703
  Serious: Yes (Other)
  Sender: FDA-Public Use
  Company Number: US-PFIZER INC-2008007268

PATIENT
  Sex: Male

DRUGS (9)
  1. LYRICA [Suspect]
     Indication: FIBROMYALGIA
  2. ANALGESICS [Suspect]
     Indication: PAIN
  3. FERROUS SULFATE [Concomitant]
  4. GLYBURIDE [Concomitant]
  5. PREVACID [Concomitant]
  6. AVAPRO [Concomitant]
  7. MORPHINE SULFATE [Concomitant]
  8. ALL OTHER THERAPEUTIC PRODUCTS [Concomitant]
  9. CYCLOSPORINE [Concomitant]
     Route: 047

REACTIONS (10)
  - ASTHENOPIA [None]
  - DISTURBANCE IN ATTENTION [None]
  - DRUG DELIVERY DEVICE IMPLANTATION [None]
  - DRUG DOSE OMISSION [None]
  - FEELING ABNORMAL [None]
  - INAPPROPRIATE SCHEDULE OF DRUG ADMINISTRATION [None]
  - INSOMNIA [None]
  - MEMORY IMPAIRMENT [None]
  - PANIC ATTACK [None]
  - VISION BLURRED [None]
